FAERS Safety Report 9551501 (Version 2)
Quarter: 2013Q3

REPORT INFORMATION
  Report Type: Spontaneous
  Country: JP (occurrence: JP)
  Receive Date: 20130925
  Receipt Date: 20130925
  Transmission Date: 20140515
  Serious: Yes (Other)
  Sender: FDA-Public Use
  Company Number: JP-ROCHE-750198

PATIENT
  Age: 57 Year
  Sex: Female

DRUGS (20)
  1. MABTHERA [Suspect]
     Indication: B-CELL LYMPHOMA
     Dosage: 250 MG, UNK
     Route: 042
  2. ZEVALIN [Suspect]
     Indication: B-CELL LYMPHOMA
     Dosage: 11.1 MBQ, UNK, DRUG- Y-90 ZEALIN
     Route: 042
  3. ZEVALIN [Suspect]
     Dosage: 130 MBQ, UNK,  DRUG- IN-111 ZEVALIN
     Route: 042
  4. CYCLOPHOSPHAMIDE [Suspect]
     Indication: PRODUCT USED FOR UNKNOWN INDICATION
     Route: 048
     Dates: start: 20100428, end: 20101007
  5. CYCLOPHOSPHAMIDE [Suspect]
     Route: 065
     Dates: start: 20101104, end: 20101113
  6. DOXORUBICIN HYDROCHLORIDE [Suspect]
     Indication: PRODUCT USED FOR UNKNOWN INDICATION
     Route: 065
  7. VINCRISTINE SULFATE [Suspect]
     Indication: PRODUCT USED FOR UNKNOWN INDICATION
     Route: 065
  8. PREDNISOLONE [Suspect]
     Indication: PRODUCT USED FOR UNKNOWN INDICATION
     Route: 065
  9. BLEOMYCIN HYDROCHLORIDE [Suspect]
     Indication: PRODUCT USED FOR UNKNOWN INDICATION
     Route: 065
  10. ETOPOSIDE [Suspect]
     Indication: PRODUCT USED FOR UNKNOWN INDICATION
     Route: 048
     Dates: start: 20100428, end: 20101007
  11. PROCARBAZINE HYDROCHLORIDE [Suspect]
     Indication: PRODUCT USED FOR UNKNOWN INDICATION
     Route: 048
     Dates: start: 20101104, end: 20101113
  12. PROCARBAZINE HYDROCHLORIDE [Suspect]
     Route: 048
     Dates: start: 20110315, end: 20110324
  13. PERAZOLIN [Suspect]
     Indication: PRODUCT USED FOR UNKNOWN INDICATION
     Route: 065
     Dates: start: 20110405, end: 20110409
  14. BENDAMUSTINE [Suspect]
     Indication: PRODUCT USED FOR UNKNOWN INDICATION
     Route: 065
  15. ACETAMINOPHEN [Concomitant]
     Indication: PREMEDICATION
     Dosage: 400 MG, UNK
     Route: 048
  16. POLARMINE [Concomitant]
     Indication: PREMEDICATION
     Dosage: 2 MG, SINGLE
     Route: 048
  17. DEXAMETHASONE [Concomitant]
     Indication: PREMEDICATION
     Dosage: 8 MG, SINGLE
     Route: 042
  18. BARACLUDE [Concomitant]
     Indication: HEPATITIS B
     Dosage: 0.5 MG, QD
     Route: 048
  19. SULFAMETHOXAZOLE/TRIMETHOPRIM [Concomitant]
     Indication: PROPHYLAXIS
     Dosage: 2 TABLET, 3/WEEK
     Route: 048
  20. LENDORMIN [Concomitant]
     Indication: INSOMNIA
     Dosage: 0.25 MG, PRN
     Route: 048
     Dates: start: 20091110, end: 20091114

REACTIONS (3)
  - White blood cell count decreased [Not Recovered/Not Resolved]
  - Neutrophil count decreased [Unknown]
  - Myelodysplastic syndrome [Not Recovered/Not Resolved]
